FAERS Safety Report 15714697 (Version 1)
Quarter: 2018Q4

REPORT INFORMATION
  Report Type: Spontaneous
  Country: IT (occurrence: IT)
  Receive Date: 20181212
  Receipt Date: 20181212
  Transmission Date: 20190205
  Serious: Yes (Other)
  Sender: FDA-Public Use
  Company Number: IT-TEVA-2018-IT-985878

PATIENT
  Age: 55 Year
  Sex: Female
  Weight: 65 kg

DRUGS (11)
  1. URBASON SOLUBILE [Concomitant]
     Active Substance: METHYLPREDNISOLONE SODIUM SUCCINATE
     Indication: ANAPHYLAXIS PROPHYLAXIS
     Route: 042
     Dates: start: 20181113, end: 20181113
  2. TRIMETON 10 MG/1 ML SOLUZIONE INIETTABILE [Concomitant]
     Indication: ANAPHYLAXIS PROPHYLAXIS
     Route: 042
     Dates: start: 20181113, end: 20181113
  3. XANAX [Concomitant]
     Active Substance: ALPRAZOLAM
     Route: 048
  4. CARBOPLATINO TEVA [Suspect]
     Active Substance: CARBOPLATIN
     Indication: OVARIAN CANCER METASTATIC
     Route: 042
     Dates: start: 20181113, end: 20181113
  5. RANITIDINA S.A.L.F. 50 MG/5 ML SOLUZIONE INIETTABILE PER USO ENDOVENOS [Concomitant]
     Indication: ANAPHYLAXIS PROPHYLAXIS
     Dates: start: 20181113, end: 20181113
  6. SOLDESAM [Concomitant]
     Active Substance: DEXAMETHASONE
     Indication: ANAPHYLAXIS PROPHYLAXIS
     Route: 042
     Dates: start: 20181113, end: 20181113
  7. EUTIROX [Concomitant]
     Active Substance: LEVOTHYROXINE SODIUM
     Indication: HYPOTHYROIDISM
     Route: 048
  8. PACLITAXEL TEVA [Suspect]
     Active Substance: PACLITAXEL
     Indication: OVARIAN CANCER METASTATIC
     Route: 042
     Dates: start: 20181113, end: 20181113
  9. ALOXI 250 MICROGRAMS SOLUTION FOR INJECTION [Concomitant]
     Indication: PROPHYLAXIS OF NAUSEA AND VOMITING
     Dates: start: 20181113, end: 20181113
  10. CLEXANE [Concomitant]
     Active Substance: ENOXAPARIN SODIUM
     Indication: THROMBOSIS PROPHYLAXIS
     Route: 058
  11. SEQUACOR [Concomitant]
     Active Substance: BISOPROLOL
     Indication: HYPERTENSION
     Route: 048

REACTIONS (1)
  - Infusion related reaction [Recovered/Resolved]

NARRATIVE: CASE EVENT DATE: 20181113
